FAERS Safety Report 4283899-1 (Version None)
Quarter: 2004Q1

REPORT INFORMATION
  Report Type: 
  Country: None (occurrence: None)
  Receive Date: 20040130
  Receipt Date: 20040107
  Transmission Date: 20041129
  Serious: Yes (Death, Life-Threatening, Hospitalization)
  Sender: FDA-Public Use
  Company Number: WAES 0311FRA00059

PATIENT
  Age: 63 Year
  Sex: Female

DRUGS (5)
  1. CASPOFUNGIN ACETATE [Suspect]
     Indication: BRONCHOPULMONARY ASPERGILLOSIS
     Dosage: 70 MG/DAILY
     Route: 042
     Dates: start: 20031018, end: 20031119
  2. VORICONAZOLE [Suspect]
     Indication: BRONCHOPULMONARY ASPERGILLOSIS
     Dosage: 300 MG/DAILY
     Route: 042
     Dates: start: 20031018, end: 20031018
  3. ACYCLOVIR [Concomitant]
  4. OFLOXACIN [Concomitant]
  5. VANCOMYCIN [Concomitant]

REACTIONS (7)
  - DRUG INEFFECTIVE [None]
  - DYSPHAGIA [None]
  - GENERAL PHYSICAL HEALTH DETERIORATION [None]
  - LABORATORY TEST INTERFERENCE [None]
  - PULMONARY ALVEOLAR HAEMORRHAGE [None]
  - PULMONARY OEDEMA [None]
  - RESPIRATORY DISTRESS [None]
